FAERS Safety Report 15545335 (Version 1)
Quarter: 2018Q4

REPORT INFORMATION
  Report Type: Spontaneous
  Country: US (occurrence: US)
  Receive Date: 20181024
  Receipt Date: 20181024
  Transmission Date: 20190205
  Serious: Yes (Other)
  Sender: FDA-Public Use
  Company Number: US-PFIZER INC-2018422970

PATIENT
  Age: 54 Year
  Sex: Male

DRUGS (1)
  1. CAVERJECT IMPULSE [Suspect]
     Active Substance: ALPROSTADIL
     Dosage: UNK

REACTIONS (3)
  - Erection increased [Recovered/Resolved]
  - Injection site bruising [Recovering/Resolving]
  - Injection site discolouration [Recovering/Resolving]
